FAERS Safety Report 6070934-3 (Version None)
Quarter: 2009Q1

REPORT INFORMATION
  Report Type: 
  Country: None (occurrence: None)
  Receive Date: 20090209
  Receipt Date: 20090202
  Transmission Date: 20090719
  Serious: Yes (Hospitalization, Disabling)
  Sender: FDA-Public Use
  Company Number: JP-SANOFI-SYNTHELABO-A01200816200

PATIENT
  Sex: Female
  Weight: 50 kg

DRUGS (11)
  1. AMARYL [Concomitant]
     Indication: DIABETES MELLITUS
     Route: 048
     Dates: start: 20081129, end: 20081212
  2. VOGLIBOSE [Concomitant]
     Indication: DIABETES MELLITUS
     Route: 048
     Dates: start: 20081129, end: 20081212
  3. LIPITOR [Concomitant]
     Indication: DYSLIPIDAEMIA
     Route: 048
     Dates: start: 20081129, end: 20081212
  4. LERITE [Concomitant]
     Indication: CARDIAC FAILURE
     Route: 048
     Dates: start: 20081127, end: 20081212
  5. LANSOPRAZOLE [Concomitant]
     Indication: DRUG USE FOR UNKNOWN INDICATION
     Route: 048
     Dates: start: 20081119, end: 20081212
  6. ALDACTONE [Concomitant]
     Indication: CARDIAC FAILURE
     Route: 048
     Dates: start: 20081119, end: 20081212
  7. PLAVIX [Suspect]
     Indication: PERCUTANEOUS CORONARY INTERVENTION
     Dosage: 300 MG ONCE FOLLOWED BY 75 MG DAILY
     Route: 048
     Dates: start: 20081210, end: 20081212
  8. PLAVIX [Suspect]
     Indication: STENT PLACEMENT
     Dosage: 300 MG ONCE FOLLOWED BY 75 MG DAILY
     Route: 048
     Dates: start: 20081210, end: 20081212
  9. PLAVIX [Suspect]
     Indication: MYOCARDIAL INFARCTION
     Dosage: 300 MG ONCE FOLLOWED BY 75 MG DAILY
     Route: 048
     Dates: start: 20081210, end: 20081212
  10. LASIX [Concomitant]
     Indication: CARDIAC FAILURE
     Route: 048
     Dates: start: 20081119, end: 20081212
  11. BUFFERIN [Concomitant]
     Indication: MYOCARDIAL INFARCTION
     Route: 048
     Dates: start: 20081119

REACTIONS (1)
  - HEPATIC FUNCTION ABNORMAL [None]
